FAERS Safety Report 4360650-8 (Version None)
Quarter: 2004Q2

REPORT INFORMATION
  Report Type: 
  Country: None (occurrence: None)
  Receive Date: 20040518
  Receipt Date: 20040518
  Transmission Date: 20050107
  Serious: Yes (Hospitalization)
  Sender: FDA-Public Use
  Company Number: None

PATIENT
  Age: 23 Year
  Sex: Female
  Weight: 43.2 kg

DRUGS (6)
  1. PYRIMETHAMINE TAB [Suspect]
     Indication: CEREBRAL TOXOPLASMOSIS
     Dosage: 75 MG PO Q24HOURS
     Route: 048
     Dates: start: 20040108, end: 20040129
  2. SULFADIAZINE [Suspect]
     Indication: CEREBRAL TOXOPLASMOSIS
     Dosage: 1000 MG PO Q6HOURS
     Route: 048
     Dates: start: 20040108, end: 20040129
  3. EFAVIRENZ [Concomitant]
  4. ZIDOVUDINE [Concomitant]
  5. ESCITALOPRAM [Concomitant]
  6. LAMIVUDINE [Concomitant]

REACTIONS (1)
  - PLATELET COUNT DECREASED [None]
